FAERS Safety Report 12336324 (Version 1)
Quarter: 2016Q2

REPORT INFORMATION
  Report Type: Spontaneous
  Country: US (occurrence: None)
  Receive Date: 20160504
  Receipt Date: 20160504
  Transmission Date: 20160815
  Serious: Yes (Hospitalization, Disabling)
  Sender: FDA-Public Use
  Company Number: None

PATIENT
  Age: 84 Year
  Sex: Female
  Weight: 46.72 kg

DRUGS (5)
  1. TAMAZAPAN [Concomitant]
  2. FIORCET [Concomitant]
  3. DICYCLOMINE [Concomitant]
     Active Substance: DICYCLOMINE HYDROCHLORIDE
  4. LINZESS [Suspect]
     Active Substance: LINACLOTIDE
     Indication: CONSTIPATION
     Dosage: IN THE MORNING TAKEN BY MOUTH
     Route: 048
  5. DULCOLAX NOS [Concomitant]
     Active Substance: BISACODYL OR DOCUSATE SODIUM

REACTIONS (7)
  - Asthenia [None]
  - Pyrexia [None]
  - Weight decreased [None]
  - Pain [None]
  - Dyspnoea [None]
  - Chills [None]
  - Decreased appetite [None]
